FAERS Safety Report 7935706-0 (Version None)
Quarter: 2011Q4

REPORT INFORMATION
  Report Type: 
  Country: None (occurrence: None)
  Receive Date: 20111121
  Receipt Date: 20111110
  Transmission Date: 20120403
  Serious: Yes (Disabling)
  Sender: FDA-Public Use
  Company Number: 2011AP002668

PATIENT
  Age: 79 Year
  Sex: Female

DRUGS (20)
  1. ASPIRIN [Concomitant]
  2. BISOPROLOL FUMARATE [Concomitant]
  3. DOXAZOSIN MESYLATE [Concomitant]
  4. ALBUTEROL SULFATE [Concomitant]
  5. ATORVASTATIN [Concomitant]
  6. MATRIFEN (FENTANYL) [Concomitant]
  7. NASEPTIN (NASEPTIN) [Concomitant]
  8. ACETAMINOPHEN W/ CODEINE [Concomitant]
  9. FUROSEMIDE [Concomitant]
  10. PREDNISOLONE [Concomitant]
  11. MORPHINE SULFATE [Concomitant]
  12. QVAR [Concomitant]
  13. ALENDRONATE SODIUM [Suspect]
     Dates: start: 20111026
  14. RAMIPRIL [Concomitant]
  15. SODIUM CHLORIDE 0.9% [Concomitant]
  16. DURAPHAT (SODIUM FLUORIDE) [Concomitant]
  17. HIBISCRUB (CHLORHEXIDINE GLUCONATE) [Concomitant]
  18. METHOTREXATE [Concomitant]
  19. OMEPRAZOLE [Concomitant]
  20. VISCOPASTE (ZINC OXIDE) [Concomitant]

REACTIONS (1)
  - OSTEONECROSIS [None]
